FAERS Safety Report 7484101-X (Version None)
Quarter: 2011Q2

REPORT INFORMATION
  Report Type: 
  Country: None (occurrence: None)
  Receive Date: 20110517
  Receipt Date: 20091009
  Transmission Date: 20111010
  Serious: Yes (Other)
  Sender: FDA-Public Use
  Company Number: US-BAYER-200935567NA

PATIENT
  Age: 62 Year
  Sex: Female
  Weight: 68 kg

DRUGS (15)
  1. TRASYLOL [Suspect]
     Indication: CORONARY ARTERY BYPASS
     Dosage: 1 ML, ONCE, INITIAL TEST DOSE
     Route: 042
     Dates: start: 20040928, end: 20040928
  2. SYNTHROID [Concomitant]
     Dosage: UNK
     Route: 048
     Dates: start: 19800101
  3. PLAVIX [Concomitant]
  4. NITROGLYCERIN [Concomitant]
     Dosage: UNK
     Dates: start: 20040928
  5. RED BLOOD CELLS [Concomitant]
     Dosage: 3 U, UNK
  6. COUMADIN [Concomitant]
     Dosage: UNK
     Route: 048
     Dates: start: 19900101
  7. NORVASC [Concomitant]
  8. LOPRESSOR [Concomitant]
  9. HEPARIN [Concomitant]
     Dosage: 30000 U, UNK
     Dates: start: 20040928
  10. TRASYLOL [Suspect]
     Indication: MITRAL VALVE REPLACEMENT
  11. PROTAMINE SULFATE [Concomitant]
     Dosage: UNK
     Dates: start: 20040928
  12. PLASMA [Concomitant]
     Dosage: 2 U, UNK
  13. PLATELETS [Concomitant]
     Dosage: 12 U, UNK
  14. ZOCOR [Concomitant]
     Dosage: UNK
     Route: 048
     Dates: start: 19900101
  15. ACETYLSALICYLIC ACID SRT [Concomitant]

REACTIONS (10)
  - RENAL INJURY [None]
  - INJURY [None]
  - RENAL IMPAIRMENT [None]
  - EMOTIONAL DISTRESS [None]
  - UNEVALUABLE EVENT [None]
  - ANXIETY [None]
  - RENAL FAILURE [None]
  - PAIN [None]
  - STRESS [None]
  - FEAR [None]
